FAERS Safety Report 21620287 (Version 1)
Quarter: 2022Q4

REPORT INFORMATION
  Report Type: Spontaneous
  Country: US (occurrence: US)
  Receive Date: 20221121
  Receipt Date: 20221121
  Transmission Date: 20230113
  Serious: No
  Sender: FDA-Public Use
  Company Number: US-BRISTOL-MYERS SQUIBB COMPANY-2022-140069

PATIENT
  Age: 82 Year
  Sex: Male
  Weight: 72.12 kg

DRUGS (1)
  1. REVLIMID [Suspect]
     Active Substance: LENALIDOMIDE
     Indication: Plasma cell myeloma
     Dosage: FREQUENCY: DAILY 1-7, THEN 14 DAYS OFF?ONGOING
     Route: 048
     Dates: start: 20210601

REACTIONS (2)
  - Taste disorder [Not Recovered/Not Resolved]
  - Off label use [Unknown]
